FAERS Safety Report 6404488-6 (Version None)
Quarter: 2009Q4

REPORT INFORMATION
  Report Type: 
  Country: None (occurrence: None)
  Receive Date: 20091016
  Receipt Date: 20090907
  Transmission Date: 20100525
  Serious: Yes (Hospitalization)
  Sender: FDA-Public Use
  Company Number: FR-ALEXION-A200900738

PATIENT

DRUGS (1)
  1. SOLIRIS [Suspect]
     Indication: PAROXYSMAL NOCTURNAL HAEMOGLOBINURIA

REACTIONS (3)
  - ABDOMINAL PAIN [None]
  - BLOOD BILIRUBIN INCREASED [None]
  - GENERAL PHYSICAL HEALTH DETERIORATION [None]
